FAERS Safety Report 7914186-5 (Version None)
Quarter: 2011Q4

REPORT INFORMATION
  Report Type: 
  Country: None (occurrence: None)
  Receive Date: 20111115
  Receipt Date: 20111115
  Transmission Date: 20120403
  Serious: No
  Sender: FDA-Public Use
  Company Number: None

PATIENT
  Age: 32 Year
  Sex: Female
  Weight: 95.254 kg

DRUGS (2)
  1. DIVALPROEX SODIUM [Suspect]
     Indication: BIPOLAR II DISORDER
     Dosage: 1000 MG
     Route: 048
     Dates: start: 20110405, end: 20110822
  2. DIVALPROEX SODIUM [Concomitant]
     Dosage: 1000 MG
     Route: 048
     Dates: start: 20110405, end: 20110822

REACTIONS (4)
  - HEPATIC STEATOSIS [None]
  - ALOPECIA [None]
  - WEIGHT INCREASED [None]
  - ABDOMINAL PAIN [None]
